FAERS Safety Report 20460768 (Version 1)
Quarter: 2022Q1

REPORT INFORMATION
  Report Type: Spontaneous
  Country: US (occurrence: None)
  Receive Date: 20220210
  Receipt Date: 20220210
  Transmission Date: 20220423
  Serious: No
  Sender: FDA-Public Use
  Company Number: None

PATIENT
  Age: 74 Year
  Sex: Female
  Weight: 67.5 kg

DRUGS (8)
  1. IBANDRONATE SODIUM [Suspect]
     Active Substance: IBANDRONATE SODIUM
     Indication: Osteoporosis
     Dosage: FREQUENCY : MONTHLY;?
     Route: 048
     Dates: start: 20220205, end: 20220205
  2. BENEZAPRIL [Concomitant]
  3. PANTOPRAZOLE [Concomitant]
     Active Substance: PANTOPRAZOLE
  4. TRETINOIN [Concomitant]
     Active Substance: TRETINOIN
  5. VITAMIN D [Concomitant]
     Active Substance: VITAMIN D NOS
  6. CRANBERRY + VITAMINS C + E SUPPORT [Concomitant]
  7. TYLENOL [Concomitant]
     Active Substance: ACETAMINOPHEN
  8. VITAMIN B12 [Concomitant]
     Active Substance: CYANOCOBALAMIN

REACTIONS (5)
  - Diarrhoea [None]
  - Tremor [None]
  - Chills [None]
  - Musculoskeletal chest pain [None]
  - Spinal pain [None]

NARRATIVE: CASE EVENT DATE: 20220205
